FAERS Safety Report 11384487 (Version 1)
Quarter: 2015Q3

REPORT INFORMATION
  Report Type: Spontaneous
  Country: US (occurrence: US)
  Receive Date: 20150811
  Receipt Date: 20150811
  Transmission Date: 20151125
  Serious: No
  Sender: FDA-Public Use
  Company Number: US-ELI_LILLY_AND_COMPANY-US201103001614

PATIENT
  Sex: Female

DRUGS (7)
  1. ASA [Concomitant]
     Active Substance: ASPIRIN
  2. VITAMIN B1 [Concomitant]
     Active Substance: THIAMINE HYDROCHLORIDE
  3. CALCIUM [Concomitant]
     Active Substance: CALCIUM
  4. ADCIRCA [Suspect]
     Active Substance: TADALAFIL
     Indication: OXYGEN SUPPLEMENTATION
     Dosage: 1 D/F, DAILY (1/D)
     Dates: start: 20110227
  5. POTASSIUM [Concomitant]
     Active Substance: POTASSIUM
  6. OMEPRAZOLE. [Concomitant]
     Active Substance: OMEPRAZOLE
  7. MULTIVITAMINS [Concomitant]
     Active Substance: VITAMINS

REACTIONS (3)
  - Back pain [Unknown]
  - Myalgia [Unknown]
  - Sleep disorder [Unknown]

NARRATIVE: CASE EVENT DATE: 20110301
